FAERS Safety Report 12472211 (Version 3)
Quarter: 2016Q3

REPORT INFORMATION
  Report Type: Spontaneous
  Country: JP (occurrence: JP)
  Receive Date: 20160616
  Receipt Date: 20160905
  Transmission Date: 20161109
  Serious: Yes (Hospitalization)
  Sender: FDA-Public Use
  Company Number: JP-JNJFOC-20160612478

PATIENT
  Age: 70 Year
  Sex: Female
  Weight: 41.8 kg

DRUGS (29)
  1. AMLODIPINE [Concomitant]
     Active Substance: AMLODIPINE BESYLATE
     Indication: HYPERTENSION
     Route: 048
  2. LASIX [Concomitant]
     Active Substance: FUROSEMIDE
     Indication: POLYURIA
     Route: 041
     Dates: start: 20160116, end: 20160119
  3. METOCLOPRAMIDE. [Concomitant]
     Active Substance: METOCLOPRAMIDE
     Indication: TARGETED CANCER THERAPY
     Route: 041
     Dates: start: 20160203, end: 20160203
  4. HYDROXYZINE HYDROCHLORIDE. [Concomitant]
     Active Substance: HYDROXYZINE HYDROCHLORIDE
     Route: 065
  5. DEXART [Concomitant]
     Active Substance: DEXAMETHASONE SODIUM PHOSPHATE
     Indication: TARGETED CANCER THERAPY
     Route: 041
     Dates: start: 20160203, end: 20160203
  6. ZOMETA [Concomitant]
     Active Substance: ZOLEDRONIC ACID
     Indication: HYPERCALCAEMIA
     Route: 041
     Dates: start: 20160116, end: 20160116
  7. XARELTO [Suspect]
     Active Substance: RIVAROXABAN
     Indication: VENOUS THROMBOSIS LIMB
     Route: 048
     Dates: start: 20160128, end: 20160208
  8. XARELTO [Suspect]
     Active Substance: RIVAROXABAN
     Indication: VENOUS THROMBOSIS LIMB
     Route: 048
     Dates: start: 20160107, end: 20160127
  9. SODIUM CHLORIDE. [Concomitant]
     Active Substance: SODIUM CHLORIDE
     Route: 065
  10. ALOXI [Concomitant]
     Active Substance: PALONOSETRON HYDROCHLORIDE
     Indication: TARGETED CANCER THERAPY
     Route: 041
     Dates: start: 20160203, end: 20160203
  11. MAGMITT [Concomitant]
     Active Substance: MAGNESIUM OXIDE
     Indication: CONSTIPATION
     Route: 048
     Dates: start: 20160118
  12. CISPLATIN. [Concomitant]
     Active Substance: CISPLATIN
     Indication: TARGETED CANCER THERAPY
     Route: 041
     Dates: start: 20160203, end: 20160203
  13. ZYLORIC [Concomitant]
     Active Substance: ALLOPURINOL
     Route: 048
  14. ZOMETA [Concomitant]
     Active Substance: ZOLEDRONIC ACID
     Indication: HYPERCALCAEMIA
     Route: 041
     Dates: start: 20160202, end: 20160202
  15. FUROSEMIDE. [Concomitant]
     Active Substance: FUROSEMIDE
     Route: 065
  16. ELCITONIN [Concomitant]
     Active Substance: ELCATONIN
     Indication: HYPERCALCAEMIA
     Route: 041
     Dates: start: 20160116, end: 20160118
  17. EMEND [Concomitant]
     Active Substance: APREPITANT
     Indication: TARGETED CANCER THERAPY
     Route: 048
     Dates: start: 20160204, end: 20160205
  18. FAROM [Concomitant]
     Active Substance: FAROPENEM SODIUM
     Indication: PYELONEPHRITIS
     Route: 048
     Dates: start: 20160129, end: 20160205
  19. IRINOTECAN HYDROCHLORIDE. [Concomitant]
     Active Substance: IRINOTECAN HYDROCHLORIDE
     Route: 065
  20. MEROPENEM. [Concomitant]
     Active Substance: MEROPENEM
     Indication: PYELONEPHRITIS
     Route: 041
     Dates: start: 20160123, end: 20160128
  21. CISPLATIN. [Concomitant]
     Active Substance: CISPLATIN
     Indication: TARGETED CANCER THERAPY
     Route: 041
     Dates: start: 20160203, end: 20160203
  22. KCL [Concomitant]
     Active Substance: POTASSIUM CHLORIDE
     Route: 050
  23. IRINOTECAN HYDROCHLORIDE. [Concomitant]
     Active Substance: IRINOTECAN HYDROCHLORIDE
     Indication: TARGETED CANCER THERAPY
     Route: 041
     Dates: start: 20160203, end: 20160203
  24. DECADRON [Concomitant]
     Active Substance: DEXAMETHASONE
     Indication: TARGETED CANCER THERAPY
     Route: 048
     Dates: start: 20160205, end: 20160207
  25. EMEND [Concomitant]
     Active Substance: APREPITANT
     Indication: TARGETED CANCER THERAPY
     Route: 048
     Dates: start: 20160203, end: 20160203
  26. DEXART [Concomitant]
     Active Substance: DEXAMETHASONE SODIUM PHOSPHATE
     Indication: TARGETED CANCER THERAPY
     Route: 041
     Dates: start: 20160203, end: 20160203
  27. LASIX [Concomitant]
     Active Substance: FUROSEMIDE
     Indication: POLYURIA
     Route: 041
     Dates: start: 20160204, end: 20160204
  28. CEFAZOLIN SODIUM. [Concomitant]
     Active Substance: CEFAZOLIN SODIUM
     Indication: PYELONEPHRITIS
     Route: 041
     Dates: start: 20160120, end: 20160123
  29. PRIMPERAN [Concomitant]
     Active Substance: METOCLOPRAMIDE HYDROCHLORIDE
     Route: 065

REACTIONS (3)
  - Trousseau^s syndrome [Recovered/Resolved]
  - Cerebral infarction [Recovered/Resolved]
  - IIIrd nerve paralysis [Recovered/Resolved]

NARRATIVE: CASE EVENT DATE: 20160207
